FAERS Safety Report 25108194 (Version 4)
Quarter: 2025Q3

REPORT INFORMATION
  Report Type: Spontaneous
  Country: US (occurrence: US)
  Receive Date: 20250322
  Receipt Date: 20250726
  Transmission Date: 20251020
  Serious: No
  Sender: SANOFI AVENTIS
  Company Number: US-SA-2025SA083719

PATIENT
  Age: 76 Year
  Sex: Female

DRUGS (20)
  1. DUPIXENT [Suspect]
     Active Substance: DUPILUMAB
     Indication: Eczema
     Route: 058
     Dates: start: 20241108, end: 20241108
  2. DUPIXENT [Suspect]
     Active Substance: DUPILUMAB
     Dosage: 300 MG, QOW
     Route: 058
     Dates: start: 202411
  3. ERYTHROMYCIN [Concomitant]
     Active Substance: ERYTHROMYCIN
  4. CHOLESTYRAMINE [Concomitant]
     Active Substance: CHOLESTYRAMINE
  5. AMLODIPINE [Concomitant]
     Active Substance: AMLODIPINE BESYLATE
     Route: 048
  6. CARVEDILOL [Concomitant]
     Active Substance: CARVEDILOL
     Route: 048
  7. CHLORTHALIDONE [Concomitant]
     Active Substance: CHLORTHALIDONE
     Route: 048
  8. FLUOXETINE [Concomitant]
     Active Substance: FLUOXETINE HYDROCHLORIDE
     Route: 048
  9. HYDROXYZINE HYDROCHLORIDE [Concomitant]
     Active Substance: HYDROXYZINE HYDROCHLORIDE
     Route: 048
  10. LEVOTHYROXINE [Concomitant]
     Active Substance: LEVOTHYROXINE
     Route: 048
  11. LORATADINE [Concomitant]
     Active Substance: LORATADINE
     Route: 048
  12. LOSARTAN [Concomitant]
     Active Substance: LOSARTAN
     Route: 048
  13. OMEPRAZOLE [Concomitant]
     Active Substance: OMEPRAZOLE
     Route: 048
  14. ONDANSETRON [Concomitant]
     Active Substance: ONDANSETRON
     Route: 048
  15. ROSUVASTATIN [Concomitant]
     Active Substance: ROSUVASTATIN
     Route: 048
  16. VALSARTAN [Concomitant]
     Active Substance: VALSARTAN
     Route: 048
  17. GABAPENTIN [Concomitant]
     Active Substance: GABAPENTIN
  18. HYOSCYAMINE SULFATE [Concomitant]
     Active Substance: HYOSCYAMINE SULFATE
  19. LORAZEPAM [Concomitant]
     Active Substance: LORAZEPAM
  20. LIDOCAINE [Concomitant]
     Active Substance: LIDOCAINE

REACTIONS (23)
  - Alopecia [Unknown]
  - Hypertension [Unknown]
  - Fall [Unknown]
  - Anger [Unknown]
  - Dyspnoea exertional [Not Recovered/Not Resolved]
  - Skin lesion [Unknown]
  - Intertrigo [Recovering/Resolving]
  - Haemangioma of skin [Unknown]
  - Lentigo [Unknown]
  - Seborrhoeic keratosis [Unknown]
  - Pruritus [Unknown]
  - Therapeutic response shortened [Unknown]
  - Injection site rash [Recovered/Resolved]
  - Dry eye [Unknown]
  - Eczema [Not Recovered/Not Resolved]
  - Pruritus [Not Recovered/Not Resolved]
  - Micrographic skin surgery [Unknown]
  - Hypersensitivity [Unknown]
  - Rash erythematous [Unknown]
  - Burning sensation [Unknown]
  - Presyncope [Unknown]
  - Injection site pain [Recovered/Resolved]
  - Nasal operation [Unknown]

NARRATIVE: CASE EVENT DATE: 20250101
